FAERS Safety Report 16432774 (Version 1)
Quarter: 2019Q2

REPORT INFORMATION
  Report Type: Spontaneous
  Country: US (occurrence: US)
  Receive Date: 20190614
  Receipt Date: 20190614
  Transmission Date: 20190711
  Serious: No
  Sender: FDA-Public Use
  Company Number: US-TARO-2018TAR00589

PATIENT
  Sex: Female

DRUGS (2)
  1. FLUOCINONIDE CREAM USP 0.05%. [Suspect]
     Active Substance: FLUOCINONIDE
     Dosage: UNK
  2. FLUOCINONIDE CREAM USP 0.05%. [Suspect]
     Active Substance: FLUOCINONIDE
     Dosage: UNK

REACTIONS (2)
  - Pruritus [Recovered/Resolved]
  - Product quality issue [Not Recovered/Not Resolved]
